FAERS Safety Report 8156674-5 (Version None)
Quarter: 2012Q1

REPORT INFORMATION
  Report Type: 
  Country: None (occurrence: None)
  Receive Date: 20120221
  Receipt Date: 20120221
  Transmission Date: 20120608
  Serious: Yes (Hospitalization)
  Sender: FDA-Public Use
  Company Number: None

PATIENT
  Sex: Male
  Weight: 73.4 kg

DRUGS (9)
  1. PHOSPHORUS [Concomitant]
  2. LEUCOVORIN CALCIUM [Suspect]
     Dosage: 37 MG
  3. FLUOROURACIL [Suspect]
     Dosage: 5236 MG
  4. ERBITUX [Suspect]
     Dosage: 467 MG
  5. CALCIUM [Concomitant]
  6. PRILOSEC [Concomitant]
  7. IRON [Concomitant]
  8. MAGNESIUM [Concomitant]
  9. ELOXATIN [Suspect]
     Dosage: 21 MG

REACTIONS (3)
  - OCCULT BLOOD POSITIVE [None]
  - ANAEMIA [None]
  - CONDITION AGGRAVATED [None]
